FAERS Safety Report 21489293 (Version 1)
Quarter: 2022Q4

REPORT INFORMATION
  Report Type: Spontaneous
  Country: JP (occurrence: JP)
  Receive Date: 20221021
  Receipt Date: 20221021
  Transmission Date: 20230113
  Serious: No
  Sender: FDA-Public Use
  Company Number: JP-ALKEM LABORATORIES LIMITED-JP-ALKEM-2022-08782

PATIENT
  Age: 39 Year
  Sex: Female

DRUGS (2)
  1. NIFEDIPINE [Suspect]
     Active Substance: NIFEDIPINE
     Indication: Hyperaldosteronism
     Dosage: 20 MILLIGRAM, DAILY
     Route: 065
  2. NIFEDIPINE [Suspect]
     Active Substance: NIFEDIPINE
     Dosage: 80 MILLIGRAM, DAILY
     Route: 065

REACTIONS (3)
  - Proteinuria [Recovered/Resolved]
  - Blood pressure increased [Recovered/Resolved]
  - Exposure during pregnancy [Unknown]
